FAERS Safety Report 14080096 (Version 1)
Quarter: 2017Q4

REPORT INFORMATION
  Report Type: Spontaneous
  Country: US (occurrence: US)
  Receive Date: 20171012
  Receipt Date: 20171012
  Transmission Date: 20180321
  Serious: No
  Sender: FDA-Public Use
  Company Number: US-BAYER-2017-190997

PATIENT
  Age: 67 Year
  Sex: Male

DRUGS (3)
  1. MIRALAX [Suspect]
     Active Substance: POLYETHYLENE GLYCOL 3350
     Indication: GASTROINTESTINAL DISORDER
     Dosage: 1 DF, HS
     Route: 048
     Dates: start: 20170930
  2. MIRALAX [Suspect]
     Active Substance: POLYETHYLENE GLYCOL 3350
     Indication: GASTROINTESTINAL DISORDER
     Dosage: HALF A CAP, OM
     Dates: start: 20171001, end: 20171002
  3. ARTHRITIS RELIEF [Concomitant]
     Active Substance: MENTHOL
     Dosage: UNK

REACTIONS (5)
  - Anorectal discomfort [Unknown]
  - Underdose [Unknown]
  - Constipation [Unknown]
  - Abnormal faeces [Unknown]
  - Underdose [Unknown]

NARRATIVE: CASE EVENT DATE: 20171001
